FAERS Safety Report 14471301 (Version 1)
Quarter: 2018Q1

REPORT INFORMATION
  Report Type: Spontaneous
  Country: US (occurrence: US)
  Receive Date: 20180130
  Receipt Date: 20180130
  Transmission Date: 20180509
  Serious: Yes (Other)
  Sender: FDA-Public Use
  Company Number: None

PATIENT
  Age: 37 Year
  Sex: Female

DRUGS (2)
  1. VITAMIN C [Concomitant]
     Active Substance: ASCORBIC ACID
  2. THERAFLU COLD AND COUGH [Suspect]
     Active Substance: DEXTROMETHORPHAN\PHENIRAMINE\PHENYLEPHRINE
     Indication: INFLUENZA
     Dates: start: 20180128, end: 20180128

REACTIONS (6)
  - Rash [None]
  - Vision blurred [None]
  - Swelling face [None]
  - Eye swelling [None]
  - Swollen tongue [None]
  - Skin discolouration [None]

NARRATIVE: CASE EVENT DATE: 20180129
